FAERS Safety Report 15327673 (Version 2)
Quarter: 2020Q3

REPORT INFORMATION
  Report Type: Spontaneous
  Country: GB (occurrence: GB)
  Receive Date: 20180828
  Receipt Date: 20200909
  Transmission Date: 20201102
  Serious: Yes (Other)
  Sender: FDA-Public Use
  Company Number: GB-NOVOPROD-617796

PATIENT
  Age: 53 Year
  Sex: Female
  Weight: 96 kg

DRUGS (8)
  1. JEXT [Concomitant]
     Active Substance: EPINEPHRINE BITARTRATE
     Dosage: USE AS DIRECTED
     Dates: start: 20180731
  2. METFORMIN [Concomitant]
     Active Substance: METFORMIN HYDROCHLORIDE
     Dosage: 2 DF, BID
     Dates: start: 20170621
  3. FLUOXETINE [Concomitant]
     Active Substance: FLUOXETINE HYDROCHLORIDE
     Dosage: 3 DF, QD
     Dates: start: 20170621
  4. VICTOZA [Suspect]
     Active Substance: LIRAGLUTIDE
     Indication: PRODUCT USED FOR UNKNOWN INDICATION
     Dosage: START WITH 0.6MG FOR 1ST 2 WEEKS
     Route: 065
     Dates: start: 20180731
  5. EPIPEN [Concomitant]
     Active Substance: EPINEPHRINE
     Dosage: 1 DAYS; USE AS DIRECTED.
     Dates: start: 20180731, end: 20180801
  6. CETIRIZINE [Concomitant]
     Active Substance: CETIRIZINE HYDROCHLORIDE
     Dosage: TAKE ONE OR TWO DAILY
     Dates: start: 20170621
  7. RAMIPRIL. [Concomitant]
     Active Substance: RAMIPRIL
     Dosage: 1 DF, QD
     Dates: start: 20170621
  8. VICTOZA [Suspect]
     Active Substance: LIRAGLUTIDE
     Dosage: INCREASED DOSE
     Route: 065

REACTIONS (4)
  - Fatigue [Unknown]
  - Postmenopausal haemorrhage [Unknown]
  - Flatulence [Unknown]
  - Headache [Unknown]

NARRATIVE: CASE EVENT DATE: 20180809
